FAERS Safety Report 11444635 (Version 1)
Quarter: 2015Q3

REPORT INFORMATION
  Report Type: Spontaneous
  Country: US (occurrence: US)
  Receive Date: 20150902
  Receipt Date: 20150902
  Transmission Date: 20151125
  Serious: Yes (Hospitalization)
  Sender: FDA-Public Use
  Company Number: US-ROCHE-1629301

PATIENT
  Age: 38 Year
  Sex: Female

DRUGS (1)
  1. ACTEMRA [Suspect]
     Active Substance: TOCILIZUMAB
     Indication: RHEUMATOID ARTHRITIS
     Dosage: FORM STRENGHTH - 162MG/0.9ML
     Route: 058

REACTIONS (3)
  - Ulcer haemorrhage [Unknown]
  - Bacterial infection [Unknown]
  - Drug dose omission [Unknown]
